FAERS Safety Report 9938719 (Version 1)
Quarter: 2014Q1

REPORT INFORMATION
  Report Type: Spontaneous
  Country: US (occurrence: US)
  Receive Date: 20140303
  Receipt Date: 20140303
  Transmission Date: 20141002
  Serious: No
  Sender: FDA-Public Use
  Company Number: US-PFIZER INC-2014056170

PATIENT
  Age: 49 Year
  Sex: Female
  Weight: 77.1 kg

DRUGS (8)
  1. VISTARIL [Suspect]
     Dosage: UNK
  2. AMOXICILLIN [Suspect]
     Dosage: UNK
  3. CODEINE [Suspect]
     Dosage: UNK
  4. ZOFRAN [Suspect]
     Dosage: UNK
  5. VALIUM [Suspect]
     Dosage: UNK
  6. ASPIRIN [Suspect]
     Dosage: UNK
  7. BENADRYL [Suspect]
     Dosage: UNK
  8. AUGMENTIN [Suspect]
     Dosage: UNK

REACTIONS (1)
  - Drug hypersensitivity [Unknown]
